FAERS Safety Report 12527907 (Version 1)
Quarter: 2016Q3

REPORT INFORMATION
  Report Type: Other
  Country: US (occurrence: US)
  Receive Date: 20160705
  Receipt Date: 20160705
  Transmission Date: 20161109
  Serious: No
  Sender: FDA-Public Use
  Company Number: US-GUERBET LLC-1054651

PATIENT
  Age: 15 Year
  Sex: Male

DRUGS (5)
  1. PREDNISONE. [Concomitant]
     Active Substance: PREDNISONE
  2. LIPIODOL [Suspect]
     Active Substance: ETHIODIZED OIL
     Indication: THERAPEUTIC EMBOLISATION
  3. INHALED TISSUE PLASMINOGEN ACTIVATOR(ALTEPLASE) [Concomitant]
  4. SILDENAFIL. [Concomitant]
     Active Substance: SILDENAFIL
  5. NBCA(N-BUTYL CYANOACRYLATE) [Concomitant]

REACTIONS (2)
  - Off label use [Recovered/Resolved]
  - Cerebral artery embolism [Recovered/Resolved]
